FAERS Safety Report 10656918 (Version 1)
Quarter: 2014Q4

REPORT INFORMATION
  Report Type: Spontaneous
  Country: US (occurrence: None)
  Receive Date: 20141215
  Receipt Date: 20141215
  Transmission Date: 20150529
  Serious: Yes (Death, Hospitalization)
  Sender: FDA-Public Use
  Company Number: US-H14001-14-01784

PATIENT
  Age: 66 Year
  Sex: Male

DRUGS (8)
  1. FLECAINIDE(FLECAINIDE)(UKNOWN)(FLECAINIDE) [Concomitant]
  2. METOPROLOL TARTRATE(METOPROLOL TARTATE)(UKNOWN)(METOPROLOL TARTRATE) [Concomitant]
  3. SIMVASTATIN (SIMVASTATIN) [Concomitant]
     Active Substance: SIMVASTATIN
  4. IRINOTECAN [Suspect]
     Active Substance: IRINOTECAN
     Indication: PANCREATIC CARCINOMA METASTATIC
     Dosage: 25% DOSE REDUCTION (UKNOWN), UKNOWN
  5. IBUPROFEN(IBUPROFEN)(UKNOWN)(IBUPROFEN) [Concomitant]
  6. FLUOROURACIL. [Suspect]
     Active Substance: FLUOROURACIL
     Indication: PANCREATIC CARCINOMA METASTATIC
     Dosage: 25% DOSE REDUCTION (UKNOWN), UKNOWN
  7. LEUCOVORIN [Suspect]
     Active Substance: LEUCOVORIN
     Indication: PANCREATIC CARCINOMA METASTATIC
     Dosage: 25% DOSE REDUCTION (UKNOWN), UKNOWN
  8. OXALIPLATIN. [Suspect]
     Active Substance: OXALIPLATIN
     Indication: PANCREATIC CARCINOMA METASTATIC
     Dosage: 25 % DOSE REDUCTION(UKNOWN), UKNOWN

REACTIONS (12)
  - Splenic abscess [None]
  - Pyrexia [None]
  - Confusional state [None]
  - Gastrointestinal toxicity [None]
  - Splenic infarction [None]
  - Brain abscess [None]
  - Hemianopia homonymous [None]
  - Neutropenia [None]
  - Liver abscess [None]
  - Seizure [None]
  - Streptococcal abscess [None]
  - Aphasia [None]
